FAERS Safety Report 12493371 (Version 8)
Quarter: 2017Q1

REPORT INFORMATION
  Report Type: Report from Study
  Country: US (occurrence: US)
  Receive Date: 20160623
  Receipt Date: 20170206
  Transmission Date: 20170428
  Serious: Yes (Hospitalization, Other)
  Sender: FDA-Public Use
  Company Number: US-GILEAD-2016-0220300

PATIENT
  Age: 60 Year
  Sex: Female
  Weight: 87.75 kg

DRUGS (7)
  1. AMBRISENTAN [Suspect]
     Active Substance: AMBRISENTAN
     Indication: PRODUCT USED FOR UNKNOWN INDICATION
     Dosage: 5 MG, QD
     Route: 048
  2. FLECAINIDE [Concomitant]
     Active Substance: FLECAINIDE
  3. METHIMAZOLE. [Concomitant]
     Active Substance: METHIMAZOLE
  4. REVATIO [Concomitant]
     Active Substance: SILDENAFIL CITRATE
  5. PRIMIDONE. [Concomitant]
     Active Substance: PRIMIDONE
  6. XARELTO [Concomitant]
     Active Substance: RIVAROXABAN
  7. SPIRONOLACTONE. [Concomitant]
     Active Substance: SPIRONOLACTONE

REACTIONS (11)
  - Unevaluable event [Recovered/Resolved]
  - Chronic obstructive pulmonary disease [Unknown]
  - Heart rate decreased [Unknown]
  - Syncope [Unknown]
  - Heart rate increased [Unknown]
  - Syncope [Unknown]
  - Syncope [Unknown]
  - Pneumonia [Not Recovered/Not Resolved]
  - Palpitations [Unknown]
  - Implantable cardiac monitor insertion [Unknown]
  - Atrial fibrillation [Unknown]

NARRATIVE: CASE EVENT DATE: 20161122
